FAERS Safety Report 19766832 (Version 3)
Quarter: 2021Q4

REPORT INFORMATION
  Report Type: Spontaneous
  Country: US (occurrence: US)
  Receive Date: 20210831
  Receipt Date: 20211006
  Transmission Date: 20220303
  Serious: Yes (Death)
  Sender: FDA-Public Use
  Company Number: US-LUPIN PHARMACEUTICALS INC.-2021-15723

PATIENT
  Sex: Male

DRUGS (8)
  1. SERTRALINE HYDROCHLORIDE [Suspect]
     Active Substance: SERTRALINE HYDROCHLORIDE
     Indication: Product used for unknown indication
     Dosage: 150 MILLIGRAM, QD (EVERY NIGHT BEFORE BED)
     Route: 065
  2. ZOLOFT [Suspect]
     Active Substance: SERTRALINE HYDROCHLORIDE
     Indication: Product used for unknown indication
     Dosage: 50 MILLIGRAM, TID, EVERY NIGHT BEFORE BED, FOR A COUPLE OF YEARS
     Route: 048
     Dates: start: 2007, end: 201911
  3. ZOLOFT [Suspect]
     Active Substance: SERTRALINE HYDROCHLORIDE
     Dosage: 50 MILLIGRAM, TID, EVERY NIGHT BEFORE BED, FOR A COUPLE OF YEARS
     Route: 048
     Dates: start: 202101
  4. SIMVASTATIN [Concomitant]
     Active Substance: SIMVASTATIN
     Indication: Blood cholesterol abnormal
     Dosage: UNK
     Route: 065
  5. KLONOPIN [Concomitant]
     Active Substance: CLONAZEPAM
     Indication: Product used for unknown indication
     Dosage: 0.5-1 DOSE BID (MORNING AND NIGHT)
     Route: 065
  6. OMEPRAZOLE [Concomitant]
     Active Substance: OMEPRAZOLE
     Indication: Product used for unknown indication
     Dosage: UNK UNK, QD
     Route: 065
  7. MORPHINE [Concomitant]
     Active Substance: MORPHINE
     Indication: Pain
     Dosage: UNK
     Route: 065
  8. Zocort [Concomitant]
     Indication: Product used for unknown indication
     Dosage: UNK
     Route: 065

REACTIONS (2)
  - Drug ineffective [Unknown]
  - Product substitution issue [Unknown]

NARRATIVE: CASE EVENT DATE: 20210101
